FAERS Safety Report 8575091-7 (Version None)
Quarter: 2012Q3

REPORT INFORMATION
  Report Type: 
  Country: None (occurrence: None)
  Receive Date: 20120807
  Receipt Date: 20110615
  Transmission Date: 20120928
  Serious: Yes (Death, Hospitalization, Other)
  Sender: FDA-Public Use
  Company Number: DE-CELGENEUS-062-50794-12053628

PATIENT
  Age: 82 Year
  Sex: Male
  Weight: 74 kg

DRUGS (5)
  1. VIDAZA [Suspect]
     Route: 058
     Dates: start: 20100525, end: 20100903
  2. RED BLOOD CELLS [Concomitant]
     Route: 041
     Dates: start: 20100803
  3. RED BLOOD CELLS [Concomitant]
     Route: 041
     Dates: start: 20100903
  4. RED BLOOD CELLS [Concomitant]
     Route: 041
     Dates: start: 20100526
  5. RED BLOOD CELLS [Concomitant]
     Route: 041
     Dates: start: 20100628

REACTIONS (10)
  - PAIN [None]
  - NO THERAPEUTIC RESPONSE [None]
  - MYELODYSPLASTIC SYNDROME [None]
  - PLATELET DISORDER [None]
  - LEUKOPENIA [None]
  - GENERAL PHYSICAL HEALTH DETERIORATION [None]
  - NAUSEA [None]
  - VOMITING [None]
  - FAECES DISCOLOURED [None]
  - HAEMOGLOBIN ABNORMAL [None]
